FAERS Safety Report 12254901 (Version 2)
Quarter: 2016Q2

REPORT INFORMATION
  Report Type: Spontaneous
  Country: US (occurrence: US)
  Receive Date: 20160411
  Receipt Date: 20160513
  Transmission Date: 20160815
  Serious: Yes (Other)
  Sender: FDA-Public Use
  Company Number: US-ELI_LILLY_AND_COMPANY-US201604000842

PATIENT
  Age: 71 Year
  Sex: Female

DRUGS (4)
  1. HUMALOG [Suspect]
     Active Substance: INSULIN LISPRO
     Indication: TYPE 2 DIABETES MELLITUS
     Dosage: UNK, OTHER
     Route: 065
     Dates: start: 201510
  2. HUMALOG [Suspect]
     Active Substance: INSULIN LISPRO
     Indication: TYPE 2 DIABETES MELLITUS
     Dosage: UNK, UNKNOWN
     Route: 065
  3. HUMALOG [Suspect]
     Active Substance: INSULIN LISPRO
     Dosage: UNK
  4. LANTUS [Concomitant]
     Active Substance: INSULIN GLARGINE

REACTIONS (16)
  - Incorrect dose administered [Unknown]
  - Insulin resistance [Unknown]
  - Blood creatine increased [Unknown]
  - Incorrect dose administered [Unknown]
  - Pain in extremity [Unknown]
  - Blood glucose increased [Recovered/Resolved]
  - Blood glucose abnormal [Recovered/Resolved]
  - Blood glucose increased [Unknown]
  - Blood glucose increased [Unknown]
  - Weight increased [Unknown]
  - Weight increased [Unknown]
  - Renal failure [Unknown]
  - Feeling abnormal [Unknown]
  - Blood potassium increased [Unknown]
  - Peripheral swelling [Recovered/Resolved]
  - Blood glucose decreased [Unknown]

NARRATIVE: CASE EVENT DATE: 2015
